FAERS Safety Report 10530836 (Version 2)
Quarter: 2014Q4

REPORT INFORMATION
  Report Type: Spontaneous
  Country: US (occurrence: US)
  Receive Date: 20141021
  Receipt Date: 20141031
  Transmission Date: 20150528
  Serious: Yes (Death, Hospitalization, Other)
  Sender: FDA-Public Use
  Company Number: US-JNJFOC-20141010225

PATIENT
  Age: 73 Year
  Sex: Female
  Weight: 68 kg

DRUGS (22)
  1. IMBRUVICA [Suspect]
     Active Substance: IBRUTINIB
     Indication: T-CELL LYMPHOMA
     Route: 048
  2. IMBRUVICA [Suspect]
     Active Substance: IBRUTINIB
     Indication: B-CELL SMALL LYMPHOCYTIC LYMPHOMA
     Route: 048
  3. IMBRUVICA [Suspect]
     Active Substance: IBRUTINIB
     Indication: B-CELL SMALL LYMPHOCYTIC LYMPHOMA
     Route: 048
     Dates: start: 201404
  4. BENZONATATE. [Concomitant]
     Active Substance: BENZONATATE
  5. VALACYCLOVIR [Concomitant]
     Active Substance: VALACYCLOVIR HYDROCHLORIDE
     Dates: end: 20141007
  6. IMBRUVICA [Suspect]
     Active Substance: IBRUTINIB
     Indication: CHRONIC LYMPHOCYTIC LEUKAEMIA
     Route: 048
  7. AMITIZA [Concomitant]
     Active Substance: LUBIPROSTONE
     Indication: CONSTIPATION
  8. SODIUM BICARBONATE. [Concomitant]
     Active Substance: SODIUM BICARBONATE
     Route: 045
  9. DIGOXIN. [Concomitant]
     Active Substance: DIGOXIN
  10. IMBRUVICA [Suspect]
     Active Substance: IBRUTINIB
     Indication: B-CELL SMALL LYMPHOCYTIC LYMPHOMA
     Route: 048
  11. ESTRACE [Concomitant]
     Active Substance: ESTRADIOL
     Route: 067
  12. DILTIAZEM XR [Concomitant]
     Active Substance: DILTIAZEM
     Dosage: 240 DF
  13. MULTIVITAMINS [Concomitant]
     Active Substance: VITAMINS
  14. IMBRUVICA [Suspect]
     Active Substance: IBRUTINIB
     Indication: T-CELL LYMPHOMA
     Route: 048
     Dates: start: 201404
  15. IMBRUVICA [Suspect]
     Active Substance: IBRUTINIB
     Indication: CHRONIC LYMPHOCYTIC LEUKAEMIA
     Route: 048
  16. IMBRUVICA [Suspect]
     Active Substance: IBRUTINIB
     Indication: CHRONIC LYMPHOCYTIC LEUKAEMIA
     Route: 048
     Dates: start: 201404
  17. FLUCONAZOLE. [Concomitant]
     Active Substance: FLUCONAZOLE
  18. PROZAC [Concomitant]
     Active Substance: FLUOXETINE HYDROCHLORIDE
  19. PREDNISONE. [Concomitant]
     Active Substance: PREDNISONE
     Dates: end: 20141007
  20. SYMBICORT [Concomitant]
     Active Substance: BUDESONIDE\FORMOTEROL FUMARATE DIHYDRATE
  21. PROBIOTICS [Concomitant]
     Active Substance: PROBIOTICS NOS
  22. IMBRUVICA [Suspect]
     Active Substance: IBRUTINIB
     Indication: T-CELL LYMPHOMA
     Route: 048

REACTIONS (3)
  - Central nervous system lymphoma [Unknown]
  - Disease progression [Fatal]
  - Mycosis fungoides [Unknown]

NARRATIVE: CASE EVENT DATE: 20140718
